FAERS Safety Report 8884748 (Version 1)
Quarter: 2012Q4

REPORT INFORMATION
  Report Type: 
  Country: US (occurrence: US)
  Receive Date: 20121102
  Receipt Date: 20121102
  Transmission Date: 20130627
  Serious: Yes (Hospitalization)
  Sender: FDA-Public Use
  Company Number: US-CELGENEUS-163-21880-12103711

PATIENT
  Sex: Male

DRUGS (2)
  1. REVLIMID [Suspect]
     Indication: MULTIPLE MYELOMA
     Dosage: 16.6667 Milligram
     Route: 048
     Dates: start: 20120829
  2. VELCADE [Suspect]
     Indication: MULTIPLE MYELOMA
     Dosage: 2.75 Milligram
     Route: 058
     Dates: start: 20121002

REACTIONS (1)
  - Adverse event [Unknown]
